FAERS Safety Report 21608955 (Version 2)
Quarter: 2022Q4

REPORT INFORMATION
  Report Type: Report from Study
  Country: US (occurrence: US)
  Receive Date: 20221117
  Receipt Date: 20221214
  Transmission Date: 20230113
  Serious: Yes (Death, Other)
  Sender: FDA-Public Use
  Company Number: US-TAKEDA-2022TUS072086

PATIENT
  Age: 70 Year
  Sex: Female

DRUGS (2)
  1. MARIBAVIR [Suspect]
     Active Substance: MARIBAVIR
     Indication: Cytomegalovirus infection
     Dosage: 200 MILLIGRAM
     Route: 048
  2. MARIBAVIR [Suspect]
     Active Substance: MARIBAVIR
     Dosage: 2 DOSAGE FORM, BID
     Route: 048
     Dates: start: 20221004, end: 20221114

REACTIONS (4)
  - Death [Fatal]
  - Hypersomnia [Unknown]
  - Taste disorder [Unknown]
  - Fatigue [Unknown]

NARRATIVE: CASE EVENT DATE: 20221114
